FAERS Safety Report 5457247-5 (Version None)
Quarter: 2007Q3

REPORT INFORMATION
  Report Type: 
  Country: None (occurrence: None)
  Receive Date: 20070918
  Receipt Date: 20070702
  Transmission Date: 20080115
  Serious: No
  Sender: FDA-Public Use
  Company Number: US-ASTRAZENECA-2007UW01947

PATIENT
  Age: 12699 Day
  Sex: Female
  Weight: 98.2 kg

DRUGS (32)
  1. SEROQUEL [Suspect]
     Indication: DEPRESSION
     Dosage: 25 MG TO 200 MG
     Route: 048
     Dates: start: 20000907, end: 20060101
  2. SEROQUEL [Suspect]
     Indication: MOOD SWINGS
     Dosage: 25 MG TO 200 MG
     Route: 048
     Dates: start: 20000907, end: 20060101
  3. APRI [Concomitant]
  4. AMBIEN [Concomitant]
     Dates: start: 20041012
  5. ARTHROTEC [Concomitant]
     Dates: start: 20050621
  6. DESOGEN [Concomitant]
  7. DOCUSATE SODIUM [Concomitant]
     Dates: start: 20040719
  8. DIFLUCAN [Concomitant]
     Dates: start: 20011105
  9. ETODOLAC [Concomitant]
     Dates: start: 20060117
  10. ESKALITH [Concomitant]
     Dates: start: 20040831
  11. GEODON [Concomitant]
  12. HALDOL [Concomitant]
  13. LIDOCAINE [Concomitant]
  14. LAMISIL [Concomitant]
  15. LIPITOR [Concomitant]
     Dates: start: 20070101
  16. LUNESTA [Concomitant]
     Dates: start: 20060413
  17. LORAZEPAM [Concomitant]
     Dates: start: 20030324
  18. METFORMIN HCL [Concomitant]
     Dates: start: 20011129
  19. MIRTAZAPINE [Concomitant]
     Dates: start: 20041008
  20. MOBIC [Concomitant]
  21. NEURONTIN [Concomitant]
     Dates: start: 20001115
  22. NAMENDA [Concomitant]
  23. PROPRANOLOL [Concomitant]
     Dates: start: 20050806
  24. RISPERDAL [Concomitant]
     Dosage: 1 - 2 MG
     Dates: start: 19981116, end: 20040218
  25. STELAZINE [Concomitant]
     Dates: start: 19900101
  26. SULINDAC [Concomitant]
     Dates: start: 20030722
  27. SPIRONOLACTONE [Concomitant]
  28. SYNTHROID [Concomitant]
     Dosage: 88 MCG
  29. ULTRAM [Concomitant]
     Dates: start: 20060426
  30. YASMIN [Concomitant]
  31. ZITHROMAX [Concomitant]
     Dates: start: 20050404
  32. ZYPREXA [Concomitant]
     Dates: start: 19970508, end: 19981116

REACTIONS (9)
  - BLOOD CHOLESTEROL INCREASED [None]
  - BLOOD TRIGLYCERIDES INCREASED [None]
  - HYPERPROLACTINAEMIA [None]
  - LEIOMYOMA [None]
  - OBESITY [None]
  - OSTEOARTHRITIS [None]
  - PATELLOFEMORAL PAIN SYNDROME [None]
  - STRESS FRACTURE [None]
  - TYPE 2 DIABETES MELLITUS [None]
